FAERS Safety Report 19125577 (Version 1)
Quarter: 2021Q2

REPORT INFORMATION
  Report Type: Spontaneous
  Country: US (occurrence: US)
  Receive Date: 20210413
  Receipt Date: 20210413
  Transmission Date: 20210717
  Serious: Yes (Other)
  Sender: FDA-Public Use
  Company Number: US-GLAXOSMITHKLINE-US2021GSK081979

PATIENT
  Sex: Male

DRUGS (8)
  1. ZANTAC [Suspect]
     Active Substance: RANITIDINE HYDROCHLORIDE
     Indication: FLATULENCE
  2. ZANTAC [Suspect]
     Active Substance: RANITIDINE HYDROCHLORIDE
     Indication: HYPERCHLORHYDRIA
     Dosage: 75 MG, WE
     Route: 065
     Dates: start: 200202, end: 201009
  3. ZANTAC [Suspect]
     Active Substance: RANITIDINE HYDROCHLORIDE
     Indication: HYPERCHLORHYDRIA
     Dosage: 75 MG, WE
     Route: 065
     Dates: start: 200202, end: 201009
  4. RANITIDINE. [Suspect]
     Active Substance: RANITIDINE
     Indication: HYPERCHLORHYDRIA
     Dosage: UNK, WE
     Route: 065
     Dates: start: 200202, end: 201009
  5. RANITIDINE. [Suspect]
     Active Substance: RANITIDINE
     Indication: FLATULENCE
  6. ZANTAC [Suspect]
     Active Substance: RANITIDINE HYDROCHLORIDE
     Indication: FLATULENCE
  7. RANITIDINE. [Suspect]
     Active Substance: RANITIDINE
     Indication: HYPERCHLORHYDRIA
     Dosage: UNK, WE
     Route: 065
     Dates: start: 200202, end: 201009
  8. RANITIDINE. [Suspect]
     Active Substance: RANITIDINE
     Indication: FLATULENCE

REACTIONS (1)
  - Colorectal cancer [Unknown]
